FAERS Safety Report 11730732 (Version 1)
Quarter: 2015Q4

REPORT INFORMATION
  Report Type: Spontaneous
  Country: US (occurrence: US)
  Receive Date: 20151110
  Receipt Date: 20151110
  Transmission Date: 20160304
  Serious: No
  Sender: FDA-Public Use
  Company Number: US-ELI_LILLY_AND_COMPANY-US201202003829

PATIENT
  Age: 77 Year
  Sex: Female

DRUGS (1)
  1. FORTEO [Suspect]
     Active Substance: TERIPARATIDE
     Dosage: UNK

REACTIONS (7)
  - Nausea [Unknown]
  - Pain in extremity [Unknown]
  - Muscular weakness [Unknown]
  - Vomiting [Unknown]
  - Back pain [Unknown]
  - Pain [Unknown]
  - Asthenia [Unknown]
